FAERS Safety Report 4658715-6 (Version None)
Quarter: 2005Q2

REPORT INFORMATION
  Report Type: 
  Country: None (occurrence: None)
  Receive Date: 20050509
  Receipt Date: 20050426
  Transmission Date: 20051028
  Serious: Yes (Other)
  Sender: FDA-Public Use
  Company Number: 2005066222

PATIENT
  Sex: Male

DRUGS (1)
  1. VISTARIL [Suspect]
     Indication: ILL-DEFINED DISORDER
     Dosage: OCCASIONALLY (25MEQ)
     Dates: start: 20040401

REACTIONS (1)
  - DRUG DEPENDENCE [None]
